FAERS Safety Report 4793531-6 (Version None)
Quarter: 2005Q4

REPORT INFORMATION
  Report Type: 
  Country: None (occurrence: None)
  Receive Date: 20051006
  Receipt Date: 20050613
  Transmission Date: 20060501
  Serious: Yes (Other)
  Sender: FDA-Public Use
  Company Number: 18976

PATIENT
  Age: 78 Year
  Sex: Female
  Weight: 44.4525 kg

DRUGS (5)
  1. DOXORUBICIN HCL [Suspect]
     Indication: B-CELL LYMPHOMA
     Dosage: 72MG/IV
     Route: 042
     Dates: start: 20050421
  2. DOXORUBICIN HCL [Suspect]
     Indication: B-CELL LYMPHOMA
     Dosage: 72MG/IV
     Route: 042
     Dates: start: 20050512
  3. DOXORUBICIN HCL [Suspect]
     Indication: B-CELL LYMPHOMA
     Dosage: 72MG/IV
     Route: 042
     Dates: start: 20050531
  4. CYTOXAN [Concomitant]
  5. VINCRISTINE [Concomitant]

REACTIONS (1)
  - LEUKOPENIA [None]
